FAERS Safety Report 9639118 (Version 1)
Quarter: 2013Q4

REPORT INFORMATION
  Report Type: Spontaneous
  Country: US (occurrence: None)
  Receive Date: 20131009
  Receipt Date: 20131009
  Transmission Date: 20140711
  Serious: Yes (Death)
  Sender: FDA-Public Use
  Company Number: 2013038247

PATIENT
  Age: 67 Year
  Sex: Male

DRUGS (3)
  1. PRIVIGEN [Suspect]
     Indication: SECONDARY IMMUNODEFICIENCY
     Dosage: 20 G, INFUSION RATE: MIN 1.66 ML/MIN, MAX
     Dates: start: 20130228, end: 20130228
  2. METOPROLOL(METOPROLOL) [Concomitant]
  3. RAMIPRIL(RAMIPRIL) [Concomitant]

REACTIONS (1)
  - No adverse event [None]
